FAERS Safety Report 23799498 (Version 1)
Quarter: 2024Q2

REPORT INFORMATION
  Report Type: Spontaneous
  Country: US (occurrence: None)
  Receive Date: 20240428
  Receipt Date: 20240428
  Transmission Date: 20240715
  Serious: Yes (Hospitalization)
  Sender: FDA-Public Use
  Company Number: None

PATIENT
  Age: 49 Year
  Sex: Female

DRUGS (9)
  1. TACROLIMUS [Suspect]
     Active Substance: TACROLIMUS
     Indication: Renal transplant
     Dosage: 4 MG TWICE A DAY ORAL?
     Route: 048
     Dates: start: 20240329
  2. MYCOPHENOLIC ACID [Suspect]
     Active Substance: MYCOPHENOLIC ACID
     Indication: Renal transplant
     Dosage: 540 MG TWICE A DAY ORAL?
     Route: 048
     Dates: start: 20240329
  3. MYCOPHENOLIC ACID [Concomitant]
     Active Substance: MYCOPHENOLIC ACID
     Dates: start: 20240329
  4. ACYCLOVIR [Concomitant]
     Active Substance: ACYCLOVIR
     Dates: start: 20240329
  5. ASPIRIN [Concomitant]
     Active Substance: ASPIRIN
     Dates: start: 20240329
  6. ENOXAPARIN [Concomitant]
     Active Substance: ENOXAPARIN
     Dates: start: 20240329
  7. FAMOTIDINE [Concomitant]
     Active Substance: FAMOTIDINE
     Dates: start: 20240329
  8. PREDNISONE [Concomitant]
     Active Substance: PREDNISONE
     Dates: start: 20240329
  9. Sulfamethoxazole/Trimethoprim 400-80mg [Concomitant]
     Dates: start: 20240329

REACTIONS (3)
  - Tremor [None]
  - Paraesthesia [None]
  - Kidney transplant rejection [None]

NARRATIVE: CASE EVENT DATE: 20240413
